FAERS Safety Report 11836208 (Version 1)
Quarter: 2015Q4

REPORT INFORMATION
  Report Type: Spontaneous
  Country: US (occurrence: None)
  Receive Date: 20151214
  Receipt Date: 20151214
  Transmission Date: 20160305
  Serious: Yes (Other)
  Sender: FDA-Public Use
  Company Number: None

PATIENT
  Sex: Female

DRUGS (1)
  1. ENOXAPARIN 40 MG AMPHASTAR PHARMACEUTICALS [Suspect]
     Active Substance: ENOXAPARIN
     Indication: THROMBOSIS PROPHYLAXIS
     Route: 058
     Dates: start: 20151207, end: 20151207

REACTIONS (2)
  - Device failure [None]
  - Injury associated with device [None]

NARRATIVE: CASE EVENT DATE: 20151207
